FAERS Safety Report 25749958 (Version 1)
Quarter: 2025Q3

REPORT INFORMATION
  Report Type: Report from Study
  Country: US (occurrence: US)
  Receive Date: 20250902
  Receipt Date: 20250902
  Transmission Date: 20251021
  Serious: Yes (Hospitalization, Other)
  Sender: UCB
  Company Number: US-UCBSA-2025052805

PATIENT
  Age: 75 Year
  Sex: Male

DRUGS (1)
  1. LACOSAMIDE [Suspect]
     Active Substance: LACOSAMIDE
     Indication: Seizure
     Dosage: 250 MILLIGRAM (200MG + 50MG 1T EACH), 2X/DAY (BID)

REACTIONS (3)
  - Cerebrovascular accident [Unknown]
  - Hospitalisation [Unknown]
  - Overdose [Unknown]

NARRATIVE: CASE EVENT DATE: 20250101
